FAERS Safety Report 6261679-5 (Version None)
Quarter: 2009Q3

REPORT INFORMATION
  Report Type: 
  Country: None (occurrence: None)
  Receive Date: 20090707
  Receipt Date: 20090707
  Transmission Date: 20100115
  Serious: Yes (Hospitalization)
  Sender: FDA-Public Use
  Company Number: None

PATIENT
  Age: 70 Year
  Sex: Male

DRUGS (2)
  1. TRIAMTERENE AND HYDROCHLOROTHIAZIDE [Suspect]
     Indication: HYPERTENSION
     Dosage: 25/37.5 MG EVERY DAY PO
     Route: 048
     Dates: start: 20070402, end: 20090404
  2. CALCIUM CARBONATE/VITAMIN D [Suspect]
     Indication: OSTEOPOROSIS
     Dosage: 250/125 BID PO
     Route: 048
     Dates: end: 20090404

REACTIONS (2)
  - HYPERCALCAEMIA [None]
  - RENAL FAILURE ACUTE [None]
